FAERS Safety Report 9790286 (Version 7)
Quarter: 2014Q2

REPORT INFORMATION
  Report Type: Report from Study
  Country: US (occurrence: US)
  Receive Date: 20131231
  Receipt Date: 20140515
  Transmission Date: 20141212
  Serious: Yes (Hospitalization)
  Sender: FDA-Public Use
  Company Number: US-ROCHE-1322051

PATIENT
  Age: 60 Year
  Sex: Male
  Weight: 75.9 kg

DRUGS (20)
  1. VEMURAFENIB [Suspect]
     Indication: MALIGNANT MELANOMA
     Dosage: ON 11/DEC/2013, HE RECEIVED MOST RECENT DOSE OF VEMURAFENIB
     Route: 048
     Dates: start: 20130919, end: 20131211
  2. CLARITIN [Concomitant]
     Indication: RASH
     Route: 048
     Dates: start: 20131004
  3. ASPIRIN [Concomitant]
     Indication: PAIN
     Route: 048
     Dates: start: 2012
  4. PRILOSEC [Concomitant]
     Indication: GASTROOESOPHAGEAL REFLUX DISEASE
     Route: 048
     Dates: start: 2012
  5. LIPITOR [Concomitant]
     Indication: HYPERLIPIDAEMIA
     Route: 048
     Dates: start: 2012
  6. AVODART [Concomitant]
     Indication: BENIGN PROSTATIC HYPERPLASIA
     Route: 048
     Dates: start: 2012
  7. NORCO [Concomitant]
     Indication: PAIN
     Route: 048
     Dates: start: 2012
  8. TESSALON PERLE [Concomitant]
     Indication: COUGH
     Route: 065
     Dates: start: 201306
  9. NICOTINE PATCH [Concomitant]
     Indication: EX-TOBACCO USER
     Route: 065
     Dates: start: 20130729
  10. FLOMAX (UNITED STATES) [Concomitant]
     Indication: BENIGN PROSTATIC HYPERPLASIA
     Route: 048
     Dates: start: 2012, end: 20131126
  11. ZOLOFT [Concomitant]
     Indication: DEPRESSION
     Route: 048
     Dates: start: 20131212
  12. VESICARE [Concomitant]
     Indication: URINARY INCONTINENCE
     Route: 048
     Dates: start: 20131126
  13. OXYCODONE [Concomitant]
     Indication: PAIN
     Route: 048
     Dates: start: 20131003
  14. GUAIFENESIN/CODEINE [Concomitant]
     Indication: COUGH
     Route: 048
     Dates: start: 20131205
  15. FENTANYL [Concomitant]
     Route: 042
     Dates: start: 20131205, end: 20131205
  16. POTASSIUM CHLORIDE [Concomitant]
     Indication: HYPOKALAEMIA
     Route: 048
     Dates: start: 20131212, end: 20131212
  17. AUGMENTIN [Concomitant]
     Indication: PNEUMONIA
     Route: 048
     Dates: start: 20131128, end: 20131211
  18. COMPAZINE [Concomitant]
     Indication: NAUSEA
     Route: 048
     Dates: start: 20131003
  19. MS CONTIN [Concomitant]
     Indication: PAIN
     Route: 048
     Dates: start: 20140306
  20. PLACEBO [Suspect]
     Indication: MALIGNANT MELANOMA
     Route: 048
     Dates: start: 20130919, end: 20131205

REACTIONS (5)
  - Cardiomyopathy [Not Recovered/Not Resolved]
  - Atrial fibrillation [Recovered/Resolved]
  - Pericardial effusion [Not Recovered/Not Resolved]
  - Pleural effusion [Recovered/Resolved]
  - Left ventricular dysfunction [Recovered/Resolved]
